FAERS Safety Report 16581706 (Version 3)
Quarter: 2019Q3

REPORT INFORMATION
  Report Type: Report from Study
  Country: US (occurrence: US)
  Receive Date: 20190716
  Receipt Date: 20190829
  Transmission Date: 20191004
  Serious: Yes (Death, Life-Threatening, Hospitalization)
  Sender: FDA-Public Use
  Company Number: US-ACTELION-A-NJ2019-190369

PATIENT
  Age: 69 Year
  Sex: Female
  Weight: 79.37 kg

DRUGS (5)
  1. UPTRAVI [Suspect]
     Active Substance: SELEXIPAG
     Dosage: 800 MG, BID
     Route: 048
  2. UPTRAVI [Suspect]
     Active Substance: SELEXIPAG
     Indication: PULMONARY ARTERIAL HYPERTENSION
     Dosage: 400 MCG, BID
     Route: 048
     Dates: start: 20190225, end: 20190716
  3. DEMADEX [Concomitant]
     Active Substance: TORSEMIDE
     Dosage: 20 MG, TID
  4. UPTRAVI [Suspect]
     Active Substance: SELEXIPAG
     Dosage: 600 MG, BID
     Route: 048
  5. REVATIO [Concomitant]
     Active Substance: SILDENAFIL CITRATE
     Dosage: 20 MG, TID
     Dates: end: 20190716

REACTIONS (12)
  - Hypokalaemia [Unknown]
  - Wound secretion [Unknown]
  - Fluid retention [Unknown]
  - Diarrhoea [Recovered/Resolved]
  - Hypotension [Fatal]
  - Fluid overload [Unknown]
  - Dyspnoea [Recovering/Resolving]
  - Right ventricular failure [Fatal]
  - Cardiac failure congestive [Unknown]
  - Respiratory failure [Fatal]
  - Renal disorder [Unknown]
  - Blood electrolytes abnormal [Unknown]

NARRATIVE: CASE EVENT DATE: 20190716
